FAERS Safety Report 5721841-4 (Version None)
Quarter: 2008Q2

REPORT INFORMATION
  Report Type: 
  Country: None (occurrence: None)
  Receive Date: 20080429
  Receipt Date: 20070514
  Transmission Date: 20081010
  Serious: No
  Sender: FDA-Public Use
  Company Number: US-ASTRAZENECA-2007UW11411

PATIENT
  Age: 71 Year
  Sex: Female
  Weight: 88.5 kg

DRUGS (7)
  1. NEXIUM [Suspect]
     Indication: GASTROOESOPHAGEAL REFLUX DISEASE
     Route: 048
  2. DETROL LA [Concomitant]
  3. THYROID TAB [Concomitant]
  4. ARTHROTEC [Concomitant]
  5. PHENTERMINE [Concomitant]
  6. DIOVAN [Concomitant]
  7. CLARINEX [Concomitant]

REACTIONS (2)
  - DRUG INEFFECTIVE [None]
  - POOR QUALITY DRUG ADMINISTERED [None]
